FAERS Safety Report 21058744 (Version 4)
Quarter: 2022Q3

REPORT INFORMATION
  Report Type: Report from Study
  Country: FR (occurrence: FR)
  Receive Date: 20220708
  Receipt Date: 20220912
  Transmission Date: 20221026
  Serious: Yes (Death, Other)
  Sender: FDA-Public Use
  Company Number: FR-GILEAD-2022-0576640

PATIENT
  Sex: Female
  Weight: 55 kg

DRUGS (9)
  1. SACITUZUMAB GOVITECAN [Suspect]
     Active Substance: SACITUZUMAB GOVITECAN
     Indication: Triple negative breast cancer
     Dosage: 7.5 MG/KG, C6D1 AND D8
     Route: 042
     Dates: start: 20220420, end: 20220427
  2. SACITUZUMAB GOVITECAN [Suspect]
     Active Substance: SACITUZUMAB GOVITECAN
     Dosage: UNK, CYCLE 5 DAY 1
     Route: 042
     Dates: start: 20220330
  3. SACITUZUMAB GOVITECAN [Suspect]
     Active Substance: SACITUZUMAB GOVITECAN
     Dosage: 7.5 MG/KG, C4D1 AND D8
     Route: 042
     Dates: start: 20220309, end: 20220316
  4. SACITUZUMAB GOVITECAN [Suspect]
     Active Substance: SACITUZUMAB GOVITECAN
     Dosage: 7.5 MG/KG, C3D1 AND D8
     Route: 042
     Dates: start: 20220216, end: 20220223
  5. SACITUZUMAB GOVITECAN [Suspect]
     Active Substance: SACITUZUMAB GOVITECAN
     Dosage: 7.5 MG/KG, C2D1 AND D8
     Route: 042
     Dates: start: 20220126, end: 20220202
  6. SACITUZUMAB GOVITECAN [Suspect]
     Active Substance: SACITUZUMAB GOVITECAN
     Dosage: 7.5 MG/KG (580 MG), C1D1 AND D8
     Route: 042
     Dates: start: 20220105, end: 20220112
  7. SACITUZUMAB GOVITECAN [Suspect]
     Active Substance: SACITUZUMAB GOVITECAN
     Dosage: 7.5 MG/KG, C7D1 AND D8
     Route: 042
     Dates: start: 20220511, end: 20220518
  8. SACITUZUMAB GOVITECAN [Suspect]
     Active Substance: SACITUZUMAB GOVITECAN
     Dosage: 7.5 MG/KG, C8D1 AND D8
     Route: 042
     Dates: start: 20220601, end: 20220608
  9. SACITUZUMAB GOVITECAN [Suspect]
     Active Substance: SACITUZUMAB GOVITECAN
     Dosage: 7.5 MG/KG, C9D1 AND D8
     Route: 042
     Dates: start: 20220623, end: 20220629

REACTIONS (9)
  - Disease progression [Fatal]
  - Transient ischaemic attack [Recovered/Resolved]
  - Gastrointestinal disorder [Recovered/Resolved]
  - Peripheral sensory neuropathy [Not Recovered/Not Resolved]
  - Asthenia [Recovered/Resolved]
  - Asthenia [Not Recovered/Not Resolved]
  - Back pain [Not Recovered/Not Resolved]
  - Fall [Recovered/Resolved]
  - Off label use [Unknown]

NARRATIVE: CASE EVENT DATE: 20220105
